FAERS Safety Report 7552470-8 (Version None)
Quarter: 2011Q2

REPORT INFORMATION
  Report Type: 
  Country: None (occurrence: None)
  Receive Date: 20110609
  Receipt Date: 20110526
  Transmission Date: 20111010
  Serious: Yes (Hospitalization)
  Sender: FDA-Public Use
  Company Number: DSJ-2011-10194

PATIENT
  Age: 81 Year
  Sex: Male

DRUGS (6)
  1. WARFARIN SODIUM [Concomitant]
  2. AVOLVE (DUTASTERIDE) (DUTASTERIDE) [Concomitant]
  3. URIEF (SILODOSIN) (SILODOSIN) [Concomitant]
  4. BISOPROLOL FUMARATE [Concomitant]
  5. OLMESARTAN MEDOXOMIL [Suspect]
     Indication: PRODUCT USED FOR UNKNOWN INDICATION
     Dosage: 20 MG, PER ORAL
     Route: 048
  6. EVIPROSTAT (SERENOA REPENS) (SERENOA REPENS) [Concomitant]

REACTIONS (1)
  - JAUNDICE [None]
